FAERS Safety Report 4982648-9 (Version None)
Quarter: 2006Q2

REPORT INFORMATION
  Report Type: 
  Country: None (occurrence: None)
  Receive Date: 20060419
  Receipt Date: 20060407
  Transmission Date: 20061013
  Serious: Yes (Hospitalization)
  Sender: FDA-Public Use
  Company Number: 2006048516

PATIENT
  Sex: Male

DRUGS (1)
  1. DETROL LA [Suspect]
     Indication: ILL-DEFINED DISORDER
     Dosage: UNK (4 MG), UNKNOWN
     Route: 065

REACTIONS (6)
  - ARTHRITIS [None]
  - BLOOD CHOLESTEROL ABNORMAL [None]
  - CONSTIPATION [None]
  - DRUG INEFFECTIVE [None]
  - HYPERTENSION [None]
  - URINARY INCONTINENCE [None]
